FAERS Safety Report 19093342 (Version 2)
Quarter: 2021Q2

REPORT INFORMATION
  Report Type: Spontaneous
  Country: US (occurrence: US)
  Receive Date: 20210405
  Receipt Date: 20210524
  Transmission Date: 20210717
  Serious: No
  Sender: FDA-Public Use
  Company Number: US-BIOGEN-2017BI00503796

PATIENT
  Sex: Female

DRUGS (5)
  1. AVONEX PEN [Suspect]
     Active Substance: INTERFERON BETA-1A
     Indication: MULTIPLE SCLEROSIS
     Route: 050
  2. AVONEX PEN [Suspect]
     Active Substance: INTERFERON BETA-1A
  3. AVONEX PEN [Suspect]
     Active Substance: INTERFERON BETA-1A
  4. AVONEX PEN [Suspect]
     Active Substance: INTERFERON BETA-1A
  5. XELJANZ XR [Concomitant]
     Active Substance: TOFACITINIB CITRATE
     Route: 065

REACTIONS (5)
  - Accidental underdose [Unknown]
  - Depression [Not Recovered/Not Resolved]
  - Headache [Unknown]
  - Injection site haemorrhage [Unknown]
  - Chills [Unknown]
